FAERS Safety Report 5108607-3 (Version None)
Quarter: 2006Q3

REPORT INFORMATION
  Report Type: 
  Country: None (occurrence: None)
  Receive Date: 20060915
  Receipt Date: 20060902
  Transmission Date: 20061208
  Serious: Yes (Other)
  Sender: FDA-Public Use
  Company Number: 2006BH013213

PATIENT
  Age: 62 Year
  Sex: Male

DRUGS (2)
  1. VINORELBINE TARTRATE [Suspect]
     Indication: LUNG NEOPLASM MALIGNANT
     Dosage: 20 MG/M**2;EVERY DAY
     Dates: start: 20041108
  2. AMRUBICIN HYDROCHLORIDE (AMRUBICIN HYDROCHLORIDE) [Suspect]
     Indication: LUNG NEOPLASM MALIGNANT
     Dosage: 30 MG/M**2;EVERY DAY
     Dates: start: 20041108

REACTIONS (3)
  - MUSCLE ABSCESS [None]
  - PYOMYOSITIS [None]
  - STAPHYLOCOCCAL INFECTION [None]
